FAERS Safety Report 5876509-0 (Version None)
Quarter: 2008Q3

REPORT INFORMATION
  Report Type: 
  Country: None (occurrence: None)
  Receive Date: 20080910
  Receipt Date: 20080903
  Transmission Date: 20090109
  Serious: Yes (Hospitalization)
  Sender: FDA-Public Use
  Company Number: B0534770A

PATIENT
  Age: 76 Year
  Sex: Female
  Weight: 53.4 kg

DRUGS (10)
  1. LAMOTRIGINE [Suspect]
     Indication: EPILEPSY
     Route: 048
     Dates: start: 20080610
  2. NITROGLYCERIN [Concomitant]
     Indication: CHEST PAIN
     Dosage: .4MG AS REQUIRED
     Route: 060
  3. PLAVIX [Concomitant]
     Indication: THROMBOSIS
     Dosage: 75MG PER DAY
     Route: 048
  4. LISINOPRIL [Concomitant]
     Indication: HYPERTENSION
     Dosage: 2.5MG PER DAY
     Route: 048
  5. ATENOLOL [Concomitant]
     Indication: HYPERTENSION
     Dosage: 12.5MG PER DAY
     Route: 048
     Dates: start: 20080824
  6. SYNTHROID [Concomitant]
     Indication: SUPPLEMENTATION THERAPY
     Dosage: 2.55MG PER DAY
     Route: 048
  7. TRAZODONE HCL [Concomitant]
     Indication: SLEEP DISORDER
     Dosage: 50MG AT NIGHT
     Route: 048
     Dates: start: 20080527
  8. SIMVASTATIN [Concomitant]
     Indication: BLOOD CHOLESTEROL DECREASED
     Dosage: 20MG PER DAY
     Route: 048
  9. LEXAPRO [Concomitant]
     Indication: ANXIETY
     Dosage: 15MG AS REQUIRED
     Route: 048
     Dates: start: 20080527
  10. LEVETIRACETAM [Concomitant]
     Dosage: 1250MG PER DAY
     Route: 048
     Dates: start: 20080409

REACTIONS (7)
  - BALANCE DISORDER [None]
  - CONFUSIONAL STATE [None]
  - DIZZINESS [None]
  - DRUG TOXICITY [None]
  - MUSCULAR WEAKNESS [None]
  - NAUSEA [None]
  - VOMITING [None]
